FAERS Safety Report 5909071-4 (Version None)
Quarter: 2008Q4

REPORT INFORMATION
  Report Type: 
  Country: None (occurrence: None)
  Receive Date: 20081001
  Receipt Date: 20080917
  Transmission Date: 20090506
  Serious: Yes (Death)
  Sender: FDA-Public Use
  Company Number: S08-UKI-00816-01

PATIENT
  Age: 47 Year
  Sex: Male

DRUGS (3)
  1. CITALOPRAM HYDROBROMIDE [Suspect]
     Indication: DEPRESSION
     Dosage: 20 MG (20 MG, 1 IN 1 D), ORAL
     Route: 048
     Dates: start: 20071101
  2. DIAZEPAM [Concomitant]
  3. ZOPICLONE (ZOPICLONE) [Concomitant]

REACTIONS (2)
  - ASPHYXIA [None]
  - COMPLETED SUICIDE [None]
